FAERS Safety Report 6967577-3 (Version None)
Quarter: 2010Q3

REPORT INFORMATION
  Report Type: 
  Country: None (occurrence: None)
  Receive Date: 20100907
  Receipt Date: 20100827
  Transmission Date: 20110219
  Serious: Yes (Other)
  Sender: FDA-Public Use
  Company Number: IE-PFIZER INC-2010108719

PATIENT

DRUGS (1)
  1. CARDURA [Suspect]
     Indication: HYPERTENSION
     Dosage: 8 MG, UNK

REACTIONS (2)
  - DRUG INEFFECTIVE [None]
  - HYPERTENSION [None]
